FAERS Safety Report 7029969 (Version 4)
Quarter: 2014Q2

REPORT INFORMATION
  Report Type: Report from Study
  Country: US (occurrence: US)
  Receive Date: 20090622
  Receipt Date: 20140411
  Transmission Date: 20141212
  Serious: Yes (Hospitalization, Other)
  Sender: FDA-Public Use
  Company Number: US-ALEXION-A200900466

PATIENT
  Age: 14 Year
  Sex: Male

DRUGS (2)
  1. SOLIRIS [Suspect]
     Indication: PAROXYSMAL NOCTURNAL HAEMOGLOBINURIA
     Dosage: 600 MG, QW
     Route: 042
     Dates: start: 20090504, end: 20090526
  2. SOLIRIS [Suspect]
     Indication: OFF LABEL USE
     Dosage: 900 MG, Q2W
     Route: 042
     Dates: start: 200906

REACTIONS (11)
  - Device related infection [Recovered/Resolved]
  - Pneumonia [Recovered/Resolved]
  - Thrombosis [Unknown]
  - Thrombosis [Unknown]
  - Quality of life decreased [Unknown]
  - Fatigue [Unknown]
  - Depression [Unknown]
  - Abdominal pain [Unknown]
  - Dyspnoea [Unknown]
  - Jaundice [Unknown]
  - Hypersensitivity [Unknown]
